FAERS Safety Report 5207975-1 (Version None)
Quarter: 2007Q1

REPORT INFORMATION
  Report Type: 
  Country: None (occurrence: None)
  Receive Date: 20070110
  Receipt Date: 20070102
  Transmission Date: 20070707
  Serious: Yes (Other)
  Sender: FDA-Public Use
  Company Number: HQWYE336103JAN07

PATIENT
  Sex: Male

DRUGS (1)
  1. AMIODARONE HCL [Suspect]
     Dosage: 200MG TABLET, DOSAGE AND FREQUENCY UNSPECIFIED ORAL
     Route: 048

REACTIONS (3)
  - COUGH [None]
  - DYSPNOEA [None]
  - LUNG DISORDER [None]
